FAERS Safety Report 4747318-0 (Version None)
Quarter: 2005Q3

REPORT INFORMATION
  Report Type: 
  Country: None (occurrence: None)
  Receive Date: 20050816
  Receipt Date: 20050810
  Transmission Date: 20060218
  Serious: Yes (Other)
  Sender: FDA-Public Use
  Company Number: 2004101759

PATIENT
  Sex: Male
  Weight: 97.5234 kg

DRUGS (13)
  1. ZYRTEC [Suspect]
     Indication: HYPERSENSITIVITY
     Dosage: 10  MG (10 MG, 1 IN 1 D), ORAL
     Route: 048
  2. LIPITOR [Suspect]
     Indication: BLOOD CHOLESTEROL
     Dosage: 40 MG (40 MG, 1 IN 1 D), ORAL
     Route: 048
  3. CELEBREX [Suspect]
     Indication: ARTHRITIS
     Dosage: ORAL
     Route: 048
  4. ACCUPRIL [Suspect]
     Indication: HYPERTENSION
     Dosage: ORAL
     Route: 048
  5. VITAMINS (VITAMINS) [Concomitant]
  6. VITAMIN E [Concomitant]
  7. SELENIUM SULFIDE [Concomitant]
  8. ASPIRIN [Concomitant]
  9. DYAZIDE [Concomitant]
  10. ADVAIR DISKUS 100/50 [Concomitant]
  11. THEO-DUR [Concomitant]
  12. NEXIUM [Concomitant]
  13. ACTONEL [Concomitant]

REACTIONS (15)
  - ARTHRITIS [None]
  - BACK PAIN [None]
  - BODY HEIGHT DECREASED [None]
  - DRUG INEFFECTIVE [None]
  - DRY MOUTH [None]
  - DYSPHONIA [None]
  - HYPERSENSITIVITY [None]
  - MUSCLE SPASMS [None]
  - NASOPHARYNGITIS [None]
  - NUCLEAR MAGNETIC RESONANCE IMAGING ABNORMAL [None]
  - PAIN [None]
  - PAIN IN EXTREMITY [None]
  - PHARYNGOLARYNGEAL PAIN [None]
  - VIRAL INFECTION [None]
  - WEIGHT INCREASED [None]
